FAERS Safety Report 4950618-2 (Version None)
Quarter: 2006Q1

REPORT INFORMATION
  Report Type: 
  Country: None (occurrence: None)
  Receive Date: 20060322
  Receipt Date: 20051031
  Transmission Date: 20060701
  Serious: Yes (Hospitalization)
  Sender: FDA-Public Use
  Company Number: US-MERCK-0511USA00331

PATIENT
  Sex: Female

DRUGS (3)
  1. VIOXX [Suspect]
     Route: 048
     Dates: start: 20040301, end: 20040707
  2. VIOXX [Suspect]
     Route: 048
     Dates: start: 20021007
  3. VIOXX [Suspect]
     Route: 048
     Dates: start: 20040129

REACTIONS (1)
  - CEREBROVASCULAR ACCIDENT [None]
